FAERS Safety Report 18742086 (Version 35)
Quarter: 2022Q4

REPORT INFORMATION
  Report Type: Spontaneous
  Country: GB (occurrence: GB)
  Receive Date: 20210114
  Receipt Date: 20221021
  Transmission Date: 20230113
  Serious: Yes (Life-Threatening, Hospitalization, Other)
  Sender: FDA-Public Use
  Company Number: GB-EMA-DD-20201130-KUMARVN_P-093325

PATIENT
  Age: 64 Year
  Sex: Male

DRUGS (22)
  1. CLOPIDOGREL BISULFATE [Suspect]
     Active Substance: CLOPIDOGREL BISULFATE
     Indication: Transient ischaemic attack
     Dosage: 75 MG, QD, (15MG/ML)
     Route: 048
     Dates: start: 20090819
  2. CLOPIDOGREL BISULFATE [Suspect]
     Active Substance: CLOPIDOGREL BISULFATE
     Indication: Schizophrenia
     Dosage: 75 MG, QD (15MG/ML)
     Route: 048
     Dates: start: 20090819, end: 202011
  3. CLOPIDOGREL BISULFATE [Suspect]
     Active Substance: CLOPIDOGREL BISULFATE
     Dosage: 75 MG, QD
     Route: 048
     Dates: start: 20090819, end: 202101
  4. CLOPIDOGREL BISULFATE [Suspect]
     Active Substance: CLOPIDOGREL BISULFATE
     Dosage: 75 MG, QD
     Route: 048
     Dates: start: 202011, end: 202011
  5. SERTRALINE [Suspect]
     Active Substance: SERTRALINE HYDROCHLORIDE
     Indication: Hyperlipidaemia
     Dosage: 15 MG
     Route: 048
  6. SERTRALINE [Suspect]
     Active Substance: SERTRALINE HYDROCHLORIDE
     Indication: Depressed mood
     Dosage: 40 MG, QD, ORAL SUSPENSION
     Route: 048
  7. SERTRALINE [Suspect]
     Active Substance: SERTRALINE HYDROCHLORIDE
     Indication: Schizophrenia
     Dosage: 150 MG
     Route: 048
  8. THIAMINE HYDROCHLORIDE [Suspect]
     Active Substance: THIAMINE HYDROCHLORIDE
     Indication: Vitamin B complex deficiency
     Dosage: 300 MG, QD
     Route: 048
  9. FOLIC ACID [Suspect]
     Active Substance: FOLIC ACID
     Indication: Blood folate decreased
     Dosage: 5 MG, Q8H
     Route: 048
  10. FOLIC ACID [Suspect]
     Active Substance: FOLIC ACID
     Indication: Extrapyramidal disorder
     Dosage: 45 MG, QD
     Route: 065
  11. FOLIC ACID [Suspect]
     Active Substance: FOLIC ACID
     Dosage: 15 MG, QD (5 MILLIGRAM, 3 TIMES A DAY)
     Route: 048
  12. FOLIC ACID [Suspect]
     Active Substance: FOLIC ACID
     Dosage: 5 MG, QD
     Route: 048
  13. SIMVASTATIN [Suspect]
     Active Substance: SIMVASTATIN
     Indication: Hyperlipidaemia
     Dosage: 40 MG, QD (TABLET)
     Route: 048
  14. SIMVASTATIN [Suspect]
     Active Substance: SIMVASTATIN
     Dosage: 40 MG, QD (ORAL SUSPENSION)
     Route: 048
  15. CLOZAPINE [Suspect]
     Active Substance: CLOZAPINE
     Indication: Schizophrenia
     Dosage: 75 MG, QD
     Route: 048
     Dates: start: 20090819, end: 202011
  16. CLOZAPINE [Suspect]
     Active Substance: CLOZAPINE
     Indication: Transient ischaemic attack
     Dosage: 75 MG, QD
     Route: 048
     Dates: start: 20090819, end: 202101
  17. CLOZAPINE [Suspect]
     Active Substance: CLOZAPINE
     Indication: Extrapyramidal disorder
  18. PROCYCLIDINE [Suspect]
     Active Substance: PROCYCLIDINE
     Indication: Extrapyramidal disorder
     Dosage: 15 MG, QD (5 MG, 3X/DAY, 15 MILLIGRAM QD)
     Route: 048
  19. PROCYCLIDINE [Suspect]
     Active Substance: PROCYCLIDINE
     Indication: Vitamin B complex deficiency
     Dosage: 45 MG, QD
     Route: 048
  20. PROCYCLIDINE [Suspect]
     Active Substance: PROCYCLIDINE
     Dosage: 40 MG, QD
     Route: 048
  21. PROCYCLIDINE [Suspect]
     Active Substance: PROCYCLIDINE
     Dosage: 5 MG, TID, (5 MG, 3X/DAY, 15 MILLIGRAM, QD)UNK
     Route: 048
  22. PROCYCLIDINE [Suspect]
     Active Substance: PROCYCLIDINE
     Dosage: 5 MG, VITAMIN B COMPLEX DEFIC
     Route: 048

REACTIONS (10)
  - Vitamin B complex deficiency [Unknown]
  - Blood folate decreased [Unknown]
  - Fall [Unknown]
  - Hospitalisation [Unknown]
  - Medication error [Unknown]
  - Product dose omission issue [Unknown]
  - Product use issue [Unknown]
  - Intentional product misuse [Unknown]
  - Off label use [Unknown]
  - Off label use [Unknown]

NARRATIVE: CASE EVENT DATE: 20201106
